FAERS Safety Report 9761003 (Version 1)
Quarter: 2013Q4

REPORT INFORMATION
  Report Type: Spontaneous
  Country: SK (occurrence: SK)
  Receive Date: 20131216
  Receipt Date: 20131216
  Transmission Date: 20140711
  Serious: Yes (Other)
  Sender: FDA-Public Use
  Company Number: SK-ACTAVIS-2013-22532

PATIENT
  Age: 60 Year
  Sex: Male

DRUGS (7)
  1. GEMCITABINE (UNKNOWN) [Suspect]
     Indication: BLADDER TRANSITIONAL CELL CARCINOMA STAGE IV
     Dosage: 1000 MG/M2, ON DAYS 1 AND 8 , SIX CYCLES (EACH OF 22 DAYS)
     Route: 065
     Dates: start: 201009, end: 201101
  2. GEMCITABINE (UNKNOWN) [Suspect]
     Indication: METASTASES TO LUNG
  3. GEMCITABINE (UNKNOWN) [Suspect]
     Indication: METASTASES TO BONE
  4. CISPLATIN (UNKNOWN) [Suspect]
     Indication: BLADDER TRANSITIONAL CELL CARCINOMA STAGE IV
     Dosage: 75 MG/M2, ON DAY 1 , SIX CYCLES (OF 22 DAYS EACH)
     Route: 065
     Dates: start: 201009, end: 201101
  5. CISPLATIN (UNKNOWN) [Suspect]
     Indication: METASTASES TO LUNG
  6. CISPLATIN (UNKNOWN) [Suspect]
     Indication: METASTASES TO BONE
  7. PAMIDRONATE DISODIUM (UNKNOWN) [Suspect]
     Indication: METASTASES TO BONE
     Dosage: 90 MG, ONCE A MONTH
     Route: 042

REACTIONS (3)
  - Hepatotoxicity [Unknown]
  - Neutropenia [Unknown]
  - Neurotoxicity [Unknown]
